FAERS Safety Report 19204794 (Version 1)
Quarter: 2021Q2

REPORT INFORMATION
  Report Type: Spontaneous
  Country: US (occurrence: US)
  Receive Date: 20210430
  Receipt Date: 20210430
  Transmission Date: 20210717
  Serious: No
  Sender: FDA-Public Use
  Company Number: None

PATIENT
  Age: 73 Year
  Sex: Male

DRUGS (9)
  1. VELTASSA [Suspect]
     Active Substance: PATIROMER
     Indication: HYPERKALAEMIA
     Route: 048
     Dates: start: 20210113
  2. SAW PALMETTO [Concomitant]
     Active Substance: HERBALS\SAW PALMETTO
  3. CARVEDILOL. [Concomitant]
     Active Substance: CARVEDILOL
  4. ASPIRIN. [Concomitant]
     Active Substance: ASPIRIN
  5. VITAMIN C [Concomitant]
     Active Substance: ASCORBIC ACID
  6. FOLIC ACID. [Concomitant]
     Active Substance: FOLIC ACID
  7. RANOLAZINE. [Concomitant]
     Active Substance: RANOLAZINE
  8. ZINC. [Concomitant]
     Active Substance: ZINC
  9. ISOSORBIDE MONONITRATE. [Concomitant]
     Active Substance: ISOSORBIDE MONONITRATE

REACTIONS (1)
  - Constipation [None]

NARRATIVE: CASE EVENT DATE: 20210429
